FAERS Safety Report 15401243 (Version 1)
Quarter: 2018Q3

REPORT INFORMATION
  Report Type: Report from Study
  Country: US (occurrence: US)
  Receive Date: 20180919
  Receipt Date: 20180919
  Transmission Date: 20181010
  Serious: Yes (Other)
  Sender: FDA-Public Use
  Company Number: US-HORIZON-KRY-0291-2018

PATIENT
  Age: 62 Year
  Sex: Male

DRUGS (2)
  1. EXJADE [Concomitant]
     Active Substance: DEFERASIROX
  2. KRYSTEXXA [Suspect]
     Active Substance: PEGLOTICASE
     Indication: GOUT
     Dosage: 8MG EVERY 2 WEEKS
     Dates: start: 20180829

REACTIONS (6)
  - Sudden onset of sleep [Recovered/Resolved]
  - Gout [Unknown]
  - Poor venous access [Unknown]
  - Throat tightness [Unknown]
  - Dyspnoea [Unknown]
  - Haemorrhage [Unknown]

NARRATIVE: CASE EVENT DATE: 20180912
